FAERS Safety Report 19653405 (Version 3)
Quarter: 2021Q3

REPORT INFORMATION
  Report Type: Report from Study
  Country: IT (occurrence: IT)
  Receive Date: 20210803
  Receipt Date: 20210816
  Transmission Date: 20211014
  Serious: Yes (Life-Threatening)
  Sender: FDA-Public Use
  Company Number: IT-PFIZER INC-202100973945

PATIENT
  Age: 57 Year
  Sex: Male

DRUGS (12)
  1. GEMTUZUMAB OZOGAMICIN [Suspect]
     Active Substance: GEMTUZUMAB OZOGAMICIN
     Dosage: 5 MG
     Route: 042
     Dates: start: 20210711, end: 20210711
  2. FUROSEMIDE. [Concomitant]
     Active Substance: FUROSEMIDE
     Dosage: 20 MG, DAILY
     Route: 042
  3. GEMTUZUMAB OZOGAMICIN [Suspect]
     Active Substance: GEMTUZUMAB OZOGAMICIN
     Indication: ACUTE MYELOID LEUKAEMIA
     Dosage: 5 MG
     Route: 042
     Dates: start: 20210705, end: 20210705
  4. CLINIMIX N17G35E [Concomitant]
     Indication: NUTRITIONAL SUPPLEMENTATION
     Dosage: 750 ML/24 H
  5. SPIRONOLACTONE. [Concomitant]
     Active Substance: SPIRONOLACTONE
     Dosage: 1 DF, DAILY
  6. GEMTUZUMAB OZOGAMICIN [Suspect]
     Active Substance: GEMTUZUMAB OZOGAMICIN
     Dosage: 5 MG
     Route: 042
     Dates: start: 20210708, end: 20210708
  7. OMEPRAZOLE. [Concomitant]
     Active Substance: OMEPRAZOLE
     Dosage: 40 MG, 2X/DAY
     Route: 042
  8. AMIKACIN. [Concomitant]
     Active Substance: AMIKACIN
     Dosage: 1 G, DAILY
     Route: 042
  9. CYTARABINE. [Suspect]
     Active Substance: CYTARABINE
     Indication: ACUTE MYELOID LEUKAEMIA
     Dosage: 336 MG
     Route: 042
     Dates: start: 20210705, end: 20210711
  10. DAUNORUBICIN HCL [Suspect]
     Active Substance: DAUNORUBICIN HYDROCHLORIDE
     Indication: ACUTE MYELOID LEUKAEMIA
     Dosage: 100 MG
     Route: 042
     Dates: start: 20210705, end: 20210707
  11. MEROPENEM. [Concomitant]
     Active Substance: MEROPENEM
     Dosage: 1 G, 3X/DAY
     Route: 042
  12. POSACONAZOLE [Concomitant]
     Active Substance: POSACONAZOLE
     Dosage: 3 DF, DAILY

REACTIONS (1)
  - Sepsis [Not Recovered/Not Resolved]

NARRATIVE: CASE EVENT DATE: 20210722
